FAERS Safety Report 18570897 (Version 2)
Quarter: 2021Q1

REPORT INFORMATION
  Report Type: Spontaneous
  Country: US (occurrence: US)
  Receive Date: 20201202
  Receipt Date: 20210223
  Transmission Date: 20210419
  Serious: No
  Sender: FDA-Public Use
  Company Number: US-ROCHE-2691837

PATIENT
  Age: 30 Year
  Sex: Male
  Weight: 34.5 kg

DRUGS (2)
  1. EVRYSDI [Suspect]
     Active Substance: RISDIPLAM
     Dosage: EVRYSDI 60 MG/80 ML
     Route: 048
  2. EVRYSDI [Suspect]
     Active Substance: RISDIPLAM
     Indication: SPINAL MUSCULAR ATROPHY
     Dosage: EVRYSDI POWDER FOR ORAL SOLUTION 0.75 MG/1 ML
     Route: 048
     Dates: start: 20200923

REACTIONS (3)
  - No adverse event [Unknown]
  - Intentional product misuse [Unknown]
  - Product leakage [Unknown]

NARRATIVE: CASE EVENT DATE: 20201004
